FAERS Safety Report 7730329-0 (Version None)
Quarter: 2011Q3

REPORT INFORMATION
  Report Type: 
  Country: None (occurrence: None)
  Receive Date: 20110906
  Receipt Date: 20110824
  Transmission Date: 20111222
  Serious: Yes (Hospitalization)
  Sender: FDA-Public Use
  Company Number: US-ELI_LILLY_AND_COMPANY-US201006007836

PATIENT
  Sex: Female

DRUGS (10)
  1. AMITRIPTYLINE HCL [Concomitant]
     Dosage: 1 MG, EACH EVENING
  2. NEURONTIN [Concomitant]
     Dosage: 300 MG, DAILY (1/D)
  3. LORAZEPAM [Concomitant]
     Dosage: 0.5 MG, UNK
  4. FORTEO [Suspect]
     Dosage: 20 UG, QD
  5. RANITIDINE [Concomitant]
     Dosage: 300 MG, DAILY (1/D)
  6. CITALOPRAM [Concomitant]
     Dosage: 20 MG, DAILY (1/D)
  7. FORTEO [Suspect]
     Indication: OSTEOPOROSIS
     Dosage: 20 UG, DAILY (1/D)
     Dates: start: 20100601
  8. HYDROCODONE [Concomitant]
     Dosage: UNK, 2/D
  9. FORTEO [Suspect]
     Dosage: 20 UG, DAILY (1/D)
  10. PROMETHAZINE [Concomitant]
     Dosage: 25 MG, AS NEEDED

REACTIONS (17)
  - CONSTIPATION [None]
  - INTESTINAL OBSTRUCTION [None]
  - WEIGHT DECREASED [None]
  - PAIN IN EXTREMITY [None]
  - PAIN [None]
  - POSTOPERATIVE ADHESION [None]
  - MALAISE [None]
  - ARTHRALGIA [None]
  - MUSCLE SPASMS [None]
  - HOSPITALISATION [None]
  - NUTRITIONAL CONDITION ABNORMAL [None]
  - ASTHENIA [None]
  - DIZZINESS [None]
  - ABDOMINAL DISTENSION [None]
  - ABDOMINAL PAIN [None]
  - ARTHRITIS [None]
  - ABDOMINAL INFECTION [None]
